FAERS Safety Report 8598005-2 (Version None)
Quarter: 2012Q3

REPORT INFORMATION
  Report Type: 
  Country: None (occurrence: None)
  Receive Date: 20120816
  Receipt Date: 20120809
  Transmission Date: 20120928
  Serious: Yes (Hospitalization)
  Sender: FDA-Public Use
  Company Number: DE-BRISTOL-MYERS SQUIBB COMPANY-16712945

PATIENT
  Age: 56 Year
  Sex: Male
  Weight: 59 kg

DRUGS (5)
  1. DEXAMETHASONE [Suspect]
     Indication: NAUSEA
     Dosage: 1DF=12 UNITS NOS
     Dates: start: 20120531, end: 20120531
  2. CISPLATIN [Suspect]
     Indication: HEAD AND NECK CANCER
     Dosage: RECENT INF-31MAY12
     Route: 042
     Dates: start: 20120430
  3. DOCETAXEL [Suspect]
     Indication: HEAD AND NECK CANCER
     Dosage: RECENT INF-31MAY12
     Route: 042
     Dates: start: 20120430
  4. CETUXIMAB [Suspect]
     Indication: HEAD AND NECK CANCER
     Dosage: 31MAY12-UNKNWN(8 OF CYCLE) RESUMED ON 11JUN12(15 OF CYCLE) RECENT INF-11JUN12
     Route: 042
     Dates: start: 20120430
  5. FLUOROURACIL [Suspect]
     Indication: HEAD AND NECK CANCER
     Dosage: RECENT INF-31MAY12
     Route: 042
     Dates: start: 20120430

REACTIONS (1)
  - SYNCOPE [None]
